FAERS Safety Report 8933395 (Version 1)
Quarter: 2012Q4

REPORT INFORMATION
  Report Type: 
  Country: US (occurrence: US)
  Receive Date: 20121128
  Receipt Date: 20121128
  Transmission Date: 20130627
  Serious: No
  Sender: FDA-Public Use
  Company Number: US-B.I. PHARMACEUTICALS,INC./RIDGEFIELD-2012-BI-01089BP

PATIENT
  Age: 65 Year
  Sex: Female
  Weight: 79 kg

DRUGS (4)
  1. SPIRIVA [Suspect]
     Indication: CHRONIC OBSTRUCTIVE PULMONARY DISEASE
     Dosage: 18 mcg
     Route: 055
     Dates: start: 20121117
  2. CHERRY TUSSIN [Concomitant]
     Indication: COUGH
     Route: 048
     Dates: start: 20121116
  3. ALBUTEROL [Concomitant]
     Indication: PNEUMONIA
     Dosage: 8 puf
     Route: 055
     Dates: start: 20121116
  4. MUCINEX DM [Concomitant]
     Indication: PNEUMONIA
     Route: 048
     Dates: start: 20121116

REACTIONS (1)
  - Nervousness [Not Recovered/Not Resolved]
